FAERS Safety Report 10477388 (Version 1)
Quarter: 2014Q3

REPORT INFORMATION
  Report Type: Spontaneous
  Country: DE (occurrence: DE)
  Receive Date: 20140926
  Receipt Date: 20140926
  Transmission Date: 20150326
  Serious: Yes (Congenital Anomaly, Other)
  Sender: FDA-Public Use
  Company Number: DE-RANBAXY-2014RR-85621

PATIENT
  Age: 1 Day
  Sex: Male

DRUGS (7)
  1. L-THYROXIN [Concomitant]
     Active Substance: LEVOTHYROXINE SODIUM
     Indication: AUTOIMMUNE THYROIDITIS
     Dosage: 75 ?G, QD
     Route: 064
     Dates: start: 20130310, end: 20131113
  2. METOPROLOL [Concomitant]
     Active Substance: METOPROLOL
     Indication: HYPERTENSION
     Dosage: 47.5 MG, BID
     Route: 064
     Dates: start: 20130502, end: 20131113
  3. RAMIPRIL. [Suspect]
     Active Substance: RAMIPRIL
     Indication: HYPERTENSION
     Dosage: 10 MG, QD
     Route: 064
     Dates: start: 20130310, end: 20130425
  4. VITAVERLAN [Concomitant]
     Indication: PROPHYLAXIS OF NEURAL TUBE DEFECT
     Dosage: 0.4 MG, DAILY
     Route: 064
  5. METFORMIN [Suspect]
     Active Substance: METFORMIN HYDROCHLORIDE
     Indication: TYPE 2 DIABETES MELLITUS
     Dosage: 1000 MG, BID
     Route: 064
     Dates: start: 20130310, end: 20130425
  6. JANUVIA [Suspect]
     Active Substance: SITAGLIPTIN PHOSPHATE
     Indication: TYPE 2 DIABETES MELLITUS
     Dosage: 100 G, QD
     Route: 064
     Dates: start: 20130310, end: 20130425
  7. METHYLDOPA. [Concomitant]
     Active Substance: METHYLDOPA
     Indication: HYPERTENSION
     Dosage: 250 MG, QID
     Route: 064
     Dates: start: 20130502, end: 20131113

REACTIONS (3)
  - Large for dates baby [Recovering/Resolving]
  - Diabetic foetopathy [Recovered/Resolved]
  - Atrial septal defect [Unknown]

NARRATIVE: CASE EVENT DATE: 20131113
